FAERS Safety Report 10144042 (Version 1)
Quarter: 2014Q2

REPORT INFORMATION
  Report Type: Report from Study
  Country: US (occurrence: US)
  Receive Date: 20140430
  Receipt Date: 20140430
  Transmission Date: 20141212
  Serious: Yes (Hospitalization, Disabling, Other)
  Sender: FDA-Public Use
  Company Number: US-ABBVIE-14P-163-1228144-00

PATIENT
  Sex: Female
  Weight: 72.64 kg

DRUGS (5)
  1. HUMIRA [Suspect]
     Indication: RHEUMATOID ARTHRITIS
     Route: 058
     Dates: start: 2002, end: 200411
  2. HUMIRA [Suspect]
     Route: 058
     Dates: start: 200601, end: 201106
  3. HUMIRA [Suspect]
     Route: 058
     Dates: start: 201108
  4. FORTEO [Concomitant]
     Indication: OSTEOPOROSIS
  5. URISPAS [Concomitant]
     Indication: BLADDER SPASM

REACTIONS (16)
  - Fall [Recovered/Resolved with Sequelae]
  - Lower limb fracture [Recovered/Resolved with Sequelae]
  - Fibula fracture [Recovered/Resolved]
  - Tibia fracture [Recovered/Resolved]
  - Radius fracture [Recovered/Resolved]
  - Joint effusion [Recovered/Resolved]
  - Haemarthrosis [Recovered/Resolved]
  - Gait disturbance [Not Recovered/Not Resolved]
  - Thyroid neoplasm [Not Recovered/Not Resolved]
  - Goitre [Not Recovered/Not Resolved]
  - Cardiac murmur [Unknown]
  - Aortic valve stenosis [Unknown]
  - Goitre [Recovered/Resolved]
  - Dyspnoea [Recovered/Resolved]
  - Coronary artery stenosis [Recovered/Resolved]
  - Hypertension [Not Recovered/Not Resolved]
